FAERS Safety Report 5433849-7 (Version None)
Quarter: 2007Q3

REPORT INFORMATION
  Report Type: 
  Country: None (occurrence: None)
  Receive Date: 20070831
  Receipt Date: 20070821
  Transmission Date: 20080115
  Serious: Yes (Hospitalization)
  Sender: FDA-Public Use
  Company Number: DE-ELI_LILLY_AND_COMPANY-DE200708004977

PATIENT
  Age: 79 Year
  Sex: Female
  Weight: 68 kg

DRUGS (2)
  1. CYMBALTA [Suspect]
     Indication: DEPRESSION
     Dosage: 60 MG, DAILY (1/D)
     Route: 048
     Dates: start: 20070216
  2. NOVALGIN [Concomitant]
     Indication: POLYARTHRITIS
     Dosage: 0.25 UNK, UNK
     Route: 048

REACTIONS (2)
  - HOSPITALISATION [None]
  - MUSCLE SPASMS [None]
